FAERS Safety Report 9286418 (Version 1)
Quarter: 2013Q2

REPORT INFORMATION
  Report Type: Spontaneous
  Country: US (occurrence: US)
  Receive Date: 20130513
  Receipt Date: 20130513
  Transmission Date: 20140414
  Serious: Yes (Hospitalization, Disabling)
  Sender: FDA-Public Use
  Company Number: US-JNJFOC-20130500835

PATIENT
  Age: 63 Year
  Sex: Female
  Weight: 55.79 kg

DRUGS (3)
  1. XARELTO [Suspect]
     Indication: THROMBOSIS PROPHYLAXIS
     Dosage: AT NIGHT
     Route: 048
     Dates: start: 20130111
  2. XARELTO [Suspect]
     Indication: KNEE ARTHROPLASTY
     Dosage: AT NIGHT
     Route: 048
     Dates: start: 20130111
  3. ASA [Concomitant]
     Route: 065

REACTIONS (2)
  - Muscle haemorrhage [Unknown]
  - Nervous system disorder [Unknown]
